FAERS Safety Report 6963604-8 (Version None)
Quarter: 2010Q3

REPORT INFORMATION
  Report Type: 
  Country: None (occurrence: None)
  Receive Date: 20100902
  Receipt Date: 20100820
  Transmission Date: 20110219
  Serious: Yes (Other)
  Sender: FDA-Public Use
  Company Number: US-ELI_LILLY_AND_COMPANY-US201006002513

PATIENT
  Sex: Female

DRUGS (9)
  1. FORTEO [Suspect]
     Indication: OSTEOPOROSIS
     Dosage: 20 UG, DAILY (1/D)
     Dates: start: 20090305, end: 20100604
  2. POTASSIUM [Concomitant]
     Dosage: UNK, DAILY (1/D)
  3. SYNTHROID [Concomitant]
     Dosage: UNK, DAILY (1/D)
  4. PREMARIN [Concomitant]
     Dosage: UNK, QOD
  5. MODURETIC 5-50 [Concomitant]
     Dosage: UNK, DAILY (1/D)
  6. CALCIUM [Concomitant]
     Dosage: UNK, DAILY (1/D)
  7. VITAMIN D [Concomitant]
     Dosage: 50000 U, OTHER
  8. KLOR-CON [Concomitant]
  9. AMILORIDE HYDROCHLORIDE [Concomitant]

REACTIONS (2)
  - CONVULSION [None]
  - WEIGHT DECREASED [None]
